FAERS Safety Report 14581004 (Version 1)
Quarter: 2018Q1

REPORT INFORMATION
  Report Type: Spontaneous
  Country: US (occurrence: US)
  Receive Date: 20180228
  Receipt Date: 20180228
  Transmission Date: 20180509
  Serious: No
  Sender: FDA-Public Use
  Company Number: US-PFIZER INC-2018079294

PATIENT
  Age: 57 Year
  Sex: Male

DRUGS (1)
  1. METHOTREXATE SODIUM. [Suspect]
     Active Substance: METHOTREXATE SODIUM
     Dosage: 25 MG/ML, WEEKLY (50MG/2ML INJECTION SOLUTION INJECTS 25MG/ML ONCE PER WEEK)

REACTIONS (2)
  - Arthralgia [Unknown]
  - Condition aggravated [Unknown]
